FAERS Safety Report 9742665 (Version 2)
Quarter: 2013Q4

REPORT INFORMATION
  Report Type: Spontaneous
  Country: US (occurrence: US)
  Receive Date: 20131210
  Receipt Date: 20131210
  Transmission Date: 20140711
  Serious: No
  Sender: FDA-Public Use
  Company Number: US-GILEAD-2009-0025266

PATIENT
  Age: 66 Year
  Sex: Female

DRUGS (19)
  1. LETAIRIS [Suspect]
     Indication: PULMONARY ARTERIAL HYPERTENSION
     Route: 048
     Dates: start: 20091008
  2. DILTIAZEM [Concomitant]
  3. MICARDIS [Concomitant]
  4. COUMADIN [Concomitant]
  5. CRESTOR [Concomitant]
  6. TORSEMIDE [Concomitant]
  7. SPIRONOLACTONE [Concomitant]
  8. ADVAIR [Concomitant]
  9. PROAIR [Concomitant]
  10. SPIRIVA [Concomitant]
  11. NOVOLOG [Concomitant]
  12. LANTUS [Concomitant]
  13. FLUOXETINE [Concomitant]
  14. GEODON [Concomitant]
  15. FLURAZEPAM [Concomitant]
  16. MULTIVITAMINS [Concomitant]
  17. VITAMIN B-12 [Concomitant]
  18. CALCIUM [Concomitant]
  19. FISH OIL [Concomitant]

REACTIONS (3)
  - Hypotension [Recovered/Resolved]
  - Renal disorder [Recovered/Resolved]
  - Upper-airway cough syndrome [Recovered/Resolved]
